FAERS Safety Report 24147217 (Version 1)
Quarter: 2024Q3

REPORT INFORMATION
  Report Type: Spontaneous
  Country: US (occurrence: US)
  Receive Date: 20240729
  Receipt Date: 20240729
  Transmission Date: 20241017
  Serious: Yes (Other)
  Sender: BRISTOL MYERS SQUIBB
  Company Number: US-BRISTOL-MYERS SQUIBB COMPANY-2024-119112

PATIENT
  Age: 77 Year
  Sex: Female

DRUGS (9)
  1. REVLIMID [Suspect]
     Active Substance: LENALIDOMIDE
     Indication: Plasma cell myeloma
     Dosage: FREQUENCY: DAILY 21 DAYS THEN 7 DAYS OFF.
     Route: 048
     Dates: start: 20230425
  2. ACETAMINOPHEN [Concomitant]
     Active Substance: ACETAMINOPHEN
  3. ACYCLOVIR [Concomitant]
     Active Substance: ACYCLOVIR
  4. ASPIRIN [Concomitant]
     Active Substance: ASPIRIN
  5. DARZALEX [Concomitant]
     Active Substance: DARATUMUMAB
  6. KYPROLIS [Concomitant]
     Active Substance: CARFILZOMIB
  7. VITAMINS NOS [Concomitant]
     Active Substance: VITAMINS
  8. OMEPRAZOLE [Concomitant]
     Active Substance: OMEPRAZOLE
  9. SULFAMETHOXAZOLE\TRIMETHOPRIM [Concomitant]
     Active Substance: SULFAMETHOXAZOLE\TRIMETHOPRIM

REACTIONS (1)
  - Platelet count decreased [Unknown]
